FAERS Safety Report 21922225 (Version 3)
Quarter: 2023Q1

REPORT INFORMATION
  Report Type: Spontaneous
  Country: US (occurrence: US)
  Receive Date: 20230128
  Receipt Date: 20230218
  Transmission Date: 20230418
  Serious: No
  Sender: FDA-Public Use
  Company Number: US-UNITED THERAPEUTICS-UNT-2023-001360

PATIENT
  Age: 33 Year
  Sex: Female
  Weight: 45.351 kg

DRUGS (4)
  1. REMODULIN [Suspect]
     Active Substance: TREPROSTINIL
     Indication: Pulmonary arterial hypertension
     Dosage: 0.050 ?G/KG, (SELF-FILLED WITH 2.6ML PER CASSETTE; PUMP RATE 29MCL/HOUR), CONTINUING
     Route: 058
     Dates: start: 202301
  2. REMODULIN [Suspect]
     Active Substance: TREPROSTINIL
     Dosage: UNK, CONTINUING
     Route: 058
     Dates: start: 20230103
  3. OPSUMIT [Concomitant]
     Active Substance: MACITENTAN
     Indication: Product used for unknown indication
     Dosage: UNK
     Route: 065
  4. SILDENAFIL CITRATE [Concomitant]
     Active Substance: SILDENAFIL CITRATE
     Indication: Product used for unknown indication
     Dosage: UNK
     Route: 065

REACTIONS (15)
  - Device malfunction [Recovered/Resolved]
  - Device failure [Recovered/Resolved]
  - Device failure [Recovered/Resolved]
  - Device issue [Unknown]
  - Device leakage [Recovered/Resolved]
  - Device failure [Recovered/Resolved]
  - Diarrhoea [Recovered/Resolved]
  - Dizziness [Unknown]
  - Headache [Unknown]
  - Device failure [Recovered/Resolved]
  - Incorrect dose administered by device [Unknown]
  - Device failure [Not Recovered/Not Resolved]
  - Device issue [Recovered/Resolved]
  - Weight decreased [Recovered/Resolved]
  - Device failure [Unknown]

NARRATIVE: CASE EVENT DATE: 20230101
